FAERS Safety Report 6835207-7 (Version None)
Quarter: 2010Q3

REPORT INFORMATION
  Report Type: 
  Country: None (occurrence: None)
  Receive Date: 20100713
  Receipt Date: 20100628
  Transmission Date: 20110219
  Serious: Yes (Hospitalization)
  Sender: FDA-Public Use
  Company Number: JP-SHIRE-SPV1-2010-00230

PATIENT

DRUGS (11)
  1. FOSRENOL [Suspect]
     Indication: HYPERPHOSPHATAEMIA
     Dosage: 2250 MG, UNK
     Route: 048
     Dates: start: 20090901, end: 20100206
  2. WARFARIN SODIUM [Suspect]
     Indication: ATRIAL FIBRILLATION
     Route: 048
     Dates: start: 20090901
  3. PHOSBLOCK [Concomitant]
     Indication: HYPERPHOSPHATAEMIA
     Dosage: 24 DF, UNK
     Route: 048
  4. PERSANTINE [Concomitant]
     Dosage: 75 MG, UNK
     Route: 048
  5. DOPS [Concomitant]
     Dosage: 300 MG, UNK
     Route: 048
  6. DIGOXIN [Concomitant]
     Dosage: .125 MG, UNK
     Route: 048
  7. SORBITOL [Concomitant]
     Dosage: 20 G, UNK
     Route: 048
  8. SELBEX [Concomitant]
     Dosage: 1.5 G, UNK
     Route: 048
  9. SENNOSIDE A+B CALCIUM [Concomitant]
     Dosage: 48 MG, UNK
     Route: 048
  10. RISUMIC [Concomitant]
     Dosage: 20 MG, UNK
     Route: 048
  11. CINACALCET HYDROCHLORIDE [Concomitant]
     Dosage: 7.5 MG, UNK
     Route: 048

REACTIONS (6)
  - DRUG ADMINISTRATION ERROR [None]
  - FALL [None]
  - MELAENA [None]
  - RECTAL ULCER [None]
  - TRAUMATIC FRACTURE [None]
  - X-RAY ABNORMAL [None]
